FAERS Safety Report 6043117-0 (Version None)
Quarter: 2009Q1

REPORT INFORMATION
  Report Type: 
  Country: None (occurrence: None)
  Receive Date: 20090119
  Receipt Date: 20090108
  Transmission Date: 20090719
  Serious: Yes (Death, Other)
  Sender: FDA-Public Use
  Company Number: GB-PFIZER INC-2009153885

PATIENT

DRUGS (3)
  1. SUNITINIB MALATE [Suspect]
     Indication: RENAL CANCER METASTATIC
     Route: 048
     Dates: start: 20080122, end: 20080129
  2. DIHYDROCODEINE [Concomitant]
     Indication: PAIN
     Dosage: 60 MG, UNK
     Route: 048
  3. FYBOGEL [Concomitant]
     Indication: DIVERTICULITIS
     Route: 048

REACTIONS (4)
  - ABDOMINAL DISTENSION [None]
  - ABDOMINAL PAIN [None]
  - INTESTINAL PERFORATION [None]
  - ORAL PAIN [None]
